FAERS Safety Report 19691918 (Version 1)
Quarter: 2021Q3

REPORT INFORMATION
  Report Type: Spontaneous
  Country: GB (occurrence: GB)
  Receive Date: 20210812
  Receipt Date: 20210812
  Transmission Date: 20211014
  Serious: Yes (Life-Threatening)
  Sender: FDA-Public Use
  Company Number: GB-PFIZER INC-202100998283

PATIENT
  Age: 69 Year
  Sex: Male
  Weight: 100 kg

DRUGS (12)
  1. BISOPROLOL [Concomitant]
     Active Substance: BISOPROLOL
     Dates: start: 20210216
  2. GLYCERYL TRINITRATE [Concomitant]
     Active Substance: NITROGLYCERIN
     Dosage: PUFF AS NECESSARY
     Dates: start: 20161128
  3. INDAPAMIDE. [Concomitant]
     Active Substance: INDAPAMIDE
     Dosage: EACH MORNING
     Dates: start: 20200826
  4. FELODIPINE. [Concomitant]
     Active Substance: FELODIPINE
     Dates: start: 20210521
  5. FERROUS GLUCONATE [Concomitant]
     Active Substance: FERROUS GLUCONATE
     Dosage: WITH MEALS
     Dates: start: 20201113
  6. CLOBETASONE BUTYRATE [Concomitant]
     Active Substance: CLOBETASONE BUTYRATE
     Indication: ECZEMA
     Dosage: APPLY SPARINGLY 1?2 TIMES/DAY TO INFLAMMED ECZE...
     Dates: start: 20210716
  7. ZOPICLONE [Concomitant]
     Active Substance: ZOPICLONE
     Dosage: TAKE ONE AT NIGHT EVERY 2?3 DAYS WHEN REQUIRED
     Dates: start: 20180207
  8. ASPIRIN [ACETYLSALICYLIC ACID] [Concomitant]
     Active Substance: ASPIRIN
     Dosage: 1 DF, 1X/DAY
     Dates: start: 20171020
  9. PANTOPRAZOLE [Concomitant]
     Active Substance: PANTOPRAZOLE
     Dates: start: 20210521
  10. ZERODERM [Concomitant]
     Indication: ECZEMA
     Dosage: APPLY AT LEAST TWICE DAILY TO ECZEMA
     Dates: start: 20210716
  11. FLUCONAZOLE. [Suspect]
     Active Substance: FLUCONAZOLE
     Dosage: 50 MG
     Dates: start: 20210802
  12. SILDENAFIL. [Concomitant]
     Active Substance: SILDENAFIL
     Dosage: TAKE ONE OR TWO
     Dates: start: 20180803

REACTIONS (1)
  - Pharyngeal swelling [Recovered/Resolved]

NARRATIVE: CASE EVENT DATE: 20210802
